FAERS Safety Report 10243429 (Version 1)
Quarter: 2014Q2

REPORT INFORMATION
  Report Type: Spontaneous
  Country: US (occurrence: US)
  Receive Date: 20140618
  Receipt Date: 20140618
  Transmission Date: 20141212
  Serious: No
  Sender: FDA-Public Use
  Company Number: US-BAYER-2014-091025

PATIENT
  Sex: Female

DRUGS (1)
  1. SAFYRAL [Suspect]

REACTIONS (1)
  - Abnormal withdrawal bleeding [None]
